FAERS Safety Report 11905542 (Version 1)
Quarter: 2016Q1

REPORT INFORMATION
  Report Type: Spontaneous
  Country: US (occurrence: US)
  Receive Date: 20160109
  Receipt Date: 20160109
  Transmission Date: 20160526
  Serious: Yes (Other)
  Sender: FDA-Public Use
  Company Number: US-ZYDUS-009950

PATIENT
  Age: 18 Year
  Sex: Female

DRUGS (2)
  1. LEVETIRACETAM. [Suspect]
     Active Substance: LEVETIRACETAM
     Indication: SEIZURE
     Dosage: 2000 MG DAILY, DOSE REDUCED TO 500 MG DAILY
  2. LAMOTRIGINE. [Suspect]
     Active Substance: LAMOTRIGINE
     Indication: SEIZURE
     Dosage: 100 MG PER DAY, INCREASED TO 400 MG PER DAY

REACTIONS (12)
  - Insomnia [Unknown]
  - Burning sensation [Recovered/Resolved]
  - Aphasia [Recovered/Resolved]
  - Migraine [Recovered/Resolved]
  - Weight increased [Unknown]
  - Anxiety [Recovered/Resolved]
  - Hypotension [Unknown]
  - Bradycardia [Unknown]
  - Thrombocytopenia [Recovered/Resolved]
  - Eczema [Unknown]
  - Appetite disorder [Unknown]
  - Petit mal epilepsy [Recovered/Resolved]
